FAERS Safety Report 8758485 (Version 2)
Quarter: 2012Q4

REPORT INFORMATION
  Report Type: Spontaneous
  Country: JP (occurrence: None)
  Receive Date: 20120816
  Receipt Date: 20120905
  Transmission Date: 20130627
  Serious: Yes (Other)
  Sender: FDA-Public Use
  Company Number: JP-2012-16004

PATIENT
  Age: 88 Year
  Sex: Female

DRUGS (6)
  1. SAMSCA (TOLVAPTAN) TABLET [Suspect]
     Indication: CARDIAC FAILURE
     Route: 048
     Dates: start: 20110208
  2. SAMSCA (TOLVAPTAN) TABLET [Suspect]
     Indication: CARDIAC FAILURE
     Route: 048
  3. SAMSCA (TOLVAPTAN) TABLET [Suspect]
     Indication: CARDIAC FAILURE
     Route: 048
  4. SAMSCA (TOLVAPTAN) TABLET [Suspect]
     Indication: CARDIAC FAILURE
     Route: 048
  5. DIURETICS [Concomitant]
  6. PREDNISOLONE (PREDNISOLONE) [Concomitant]

REACTIONS (3)
  - Pneumonia [None]
  - Pulmonary oedema [None]
  - Nephrotic syndrome [None]
